FAERS Safety Report 7860175-9 (Version None)
Quarter: 2011Q4

REPORT INFORMATION
  Report Type: 
  Country: None (occurrence: None)
  Receive Date: 20111027
  Receipt Date: 20111018
  Transmission Date: 20120403
  Serious: Yes (Other)
  Sender: FDA-Public Use
  Company Number: US-US-EMD SERONO, INC.-7090601

PATIENT
  Sex: Female

DRUGS (3)
  1. REBIF [Suspect]
     Indication: PRODUCT USED FOR UNKNOWN INDICATION
     Route: 058
     Dates: start: 20110325, end: 20110701
  2. REBIF [Suspect]
     Route: 058
     Dates: start: 20110701
  3. LEXAPRO [Concomitant]
     Indication: DEPRESSION

REACTIONS (9)
  - RENAL CYST [None]
  - INJECTION SITE ERYTHEMA [None]
  - ARTHRALGIA [None]
  - DEPRESSION [None]
  - PYREXIA [None]
  - HEPATIC ENZYME INCREASED [None]
  - PAIN [None]
  - INJECTION SITE HAEMATOMA [None]
  - FATIGUE [None]
